FAERS Safety Report 7207936-7 (Version None)
Quarter: 2010Q4

REPORT INFORMATION
  Report Type: 
  Country: None (occurrence: None)
  Receive Date: 20101221
  Receipt Date: 20101213
  Transmission Date: 20110411
  Serious: Yes (Disabling, Other)
  Sender: FDA-Public Use
  Company Number: TRP_07453_2010

PATIENT
  Sex: Male
  Weight: 86.1834 kg

DRUGS (3)
  1. INFERGEN [Suspect]
     Indication: HEPATITIS C
     Dosage: DF SUBCUTANEOUS
     Route: 058
     Dates: start: 20070101, end: 20080101
  2. RIBAVIRIN [Suspect]
     Indication: HEPATITIS C
     Dosage: DF ORAL
     Route: 048
     Dates: start: 20070101
  3. PROTONIX [Concomitant]

REACTIONS (12)
  - ABNORMAL BEHAVIOUR [None]
  - BALANCE DISORDER [None]
  - CEREBROVASCULAR ACCIDENT [None]
  - DIVORCED [None]
  - FALL [None]
  - INCORRECT DOSE ADMINISTERED [None]
  - LOSS OF EMPLOYMENT [None]
  - MEMORY IMPAIRMENT [None]
  - MOOD ALTERED [None]
  - ROSACEA [None]
  - SKIN EXFOLIATION [None]
  - SKIN LESION [None]
